FAERS Safety Report 6330844-0 (Version None)
Quarter: 2009Q3

REPORT INFORMATION
  Report Type: 
  Country: None (occurrence: None)
  Receive Date: 20090827
  Receipt Date: 20090820
  Transmission Date: 20100115
  Serious: Yes (Hospitalization)
  Sender: FDA-Public Use
  Company Number: GB-JNJFOC-20090806617

PATIENT
  Age: 33 Year
  Sex: Female

DRUGS (5)
  1. TOPIRAMATE [Suspect]
     Indication: DRUG USE FOR UNKNOWN INDICATION
     Route: 048
  2. DICLOFENAC [Concomitant]
     Route: 065
  3. FERROUS SULFATE TAB [Concomitant]
     Route: 065
  4. IMIGRAN [Concomitant]
     Route: 065
  5. PROPRANOLOL [Concomitant]
     Route: 065

REACTIONS (2)
  - ANGIOEDEMA [None]
  - PARAESTHESIA [None]
